FAERS Safety Report 6770606-3 (Version None)
Quarter: 2010Q2

REPORT INFORMATION
  Report Type: 
  Country: None (occurrence: None)
  Receive Date: 20100615
  Receipt Date: 20100610
  Transmission Date: 20101027
  Serious: Yes (Death)
  Sender: FDA-Public Use
  Company Number: NL-ELI_LILLY_AND_COMPANY-NL201003007704

PATIENT
  Sex: Female

DRUGS (7)
  1. ALIMTA [Suspect]
     Indication: NON-SMALL CELL LUNG CANCER METASTATIC
     Dosage: 950 MG, ONCE EVERY 3 WEEKS
     Route: 042
     Dates: start: 20100304
  2. ALIMTA [Suspect]
     Dosage: 500 MG, UNK
  3. DEXAMETHASONE [Concomitant]
     Dosage: 2 MG, UNKNOWN
  4. FOLIC ACID [Concomitant]
     Dosage: UNK, UNKNOWN
  5. VITAMIN B-12 [Concomitant]
     Dosage: UNK, UNKNOWN
  6. ATENOLOL [Concomitant]
     Dosage: 5 MG, UNKNOWN
  7. MAXALT /01406502/ [Concomitant]
     Dosage: 1 MG, UNKNOWN

REACTIONS (2)
  - MALIGNANT NEOPLASM PROGRESSION [None]
  - MEDICATION ERROR [None]
